FAERS Safety Report 7679656-6 (Version None)
Quarter: 2011Q3

REPORT INFORMATION
  Report Type: 
  Country: None (occurrence: None)
  Receive Date: 20110809
  Receipt Date: 20110726
  Transmission Date: 20111222
  Serious: Yes (Life-Threatening, Hospitalization)
  Sender: FDA-Public Use
  Company Number: TCI2011A04208

PATIENT
  Age: 84 Year
  Sex: Male

DRUGS (1)
  1. ACTOS [Suspect]
     Dosage: 30 MG (30 MG, 1 D) PER ORAL
     Route: 048
     Dates: end: 20110614

REACTIONS (1)
  - BLADDER CANCER [None]
